FAERS Safety Report 4630281-0 (Version None)
Quarter: 2005Q2

REPORT INFORMATION
  Report Type: 
  Country: None (occurrence: None)
  Receive Date: 20050407
  Receipt Date: 20050304
  Transmission Date: 20051028
  Serious: Yes (Other)
  Sender: FDA-Public Use
  Company Number: 2005S1001078

PATIENT
  Age: 44 Year
  Sex: Male
  Weight: 92.9874 kg

DRUGS (6)
  1. FENTANYL TRANSDERMAL SYSTEM (50 MCG/HR) [Suspect]
     Indication: BACK PAIN
     Dosage: 50 MCG/HR; TDER
     Route: 062
     Dates: start: 20050201, end: 20050321
  2. FENTANYL TRANSDERMAL SYSTEM (100 MCG/HR) [Suspect]
     Indication: BACK PAIN
     Dosage: 100 MCG/HR; TDER
     Route: 062
     Dates: start: 20050201, end: 20050321
  3. HYDROMORPHONE [Concomitant]
  4. METHADONE HCL [Concomitant]
  5. DEPAKOTE [Concomitant]
  6. ESOMEPRAZOLE MAGNESIUM [Concomitant]

REACTIONS (3)
  - HYPERHIDROSIS [None]
  - PHARMACEUTICAL PRODUCT COMPLAINT [None]
  - STOMATITIS [None]
